FAERS Safety Report 15662614 (Version 2)
Quarter: 2018Q4

REPORT INFORMATION
  Report Type: Report from Study
  Country: AU (occurrence: AU)
  Receive Date: 20181127
  Receipt Date: 20181213
  Transmission Date: 20190205
  Serious: Yes (Death, Other)
  Sender: FDA-Public Use
  Company Number: AU-AMGEN-AUSNI2018168428

PATIENT
  Age: 69 Year
  Sex: Male

DRUGS (1)
  1. BLINATUMOMAB [Suspect]
     Active Substance: BLINATUMOMAB
     Indication: PRODUCT USED FOR UNKNOWN INDICATION
     Dosage: 28 MUG, QD
     Route: 065
     Dates: start: 20161213, end: 20170116

REACTIONS (3)
  - Localised oedema [Not Recovered/Not Resolved]
  - Aspiration [Not Recovered/Not Resolved]
  - Diffuse large B-cell lymphoma [Fatal]
